FAERS Safety Report 5007074-8 (Version None)
Quarter: 2006Q2

REPORT INFORMATION
  Report Type: 
  Country: None (occurrence: None)
  Receive Date: 20060519
  Receipt Date: 20060510
  Transmission Date: 20061013
  Serious: Yes (Death)
  Sender: FDA-Public Use
  Company Number: US-BOEHRINGER INGELHEIM PHARMACEUTICALS, INC.-2006-DE-02438GD

PATIENT
  Sex: Female

DRUGS (13)
  1. MORPHINE [Suspect]
     Indication: PAIN
  2. MORPHINE [Suspect]
     Indication: ABDOMINAL PAIN
     Dosage: 10 MG PARENTERAL EVERY 3 HOURS AROUND THE CLOCK
  3. MORPHINE [Suspect]
     Dosage: PATIENT-CONTROLLED ANALGESIA AT 2-3 MG/H
     Route: 042
  4. CLONIDINE [Suspect]
     Indication: PAIN
     Route: 048
  5. OXYCODONE AND ACETAMINOPHEN [Suspect]
     Indication: PAIN
     Dosage: ONE DOSE EVERY 2 - 4 H AS NEEDED
  6. DIAZEPAM [Suspect]
     Indication: PAIN
  7. DIAZEPAM [Suspect]
  8. LORAZEPAM [Suspect]
     Indication: PAIN
     Dosage: TO 6 MG/D
  9. METHADONE HCL [Suspect]
     Indication: DRUG DEPENDENCE
  10. PROPOXYPHENE HYDROCHLORIDE [Suspect]
     Indication: PAIN
  11. OXYCODONE [Suspect]
     Indication: PAIN
  12. CARISOPRODOL [Suspect]
     Indication: PAIN
  13. MEPERIDINE HCL [Suspect]
     Indication: PAIN

REACTIONS (17)
  - ABDOMINAL PAIN UPPER [None]
  - ACCIDENT AT WORK [None]
  - BACK INJURY [None]
  - CHEST PAIN [None]
  - COMPLEX REGIONAL PAIN SYNDROME [None]
  - DISORIENTATION [None]
  - DRUG DEPENDENCE [None]
  - DRUG TOXICITY [None]
  - DRUG WITHDRAWAL SYNDROME [None]
  - FACTITIOUS DISORDER [None]
  - HEPATOTOXICITY [None]
  - HYPERVENTILATION [None]
  - IATROGENIC INJURY [None]
  - LYMPHADENOPATHY [None]
  - PERITONITIS [None]
  - PROCEDURAL COMPLICATION [None]
  - VOMITING [None]
